FAERS Safety Report 7142480-7 (Version None)
Quarter: 2010Q4

REPORT INFORMATION
  Report Type: 
  Country: None (occurrence: None)
  Receive Date: 20101207
  Receipt Date: 20101124
  Transmission Date: 20110411
  Serious: Yes (Hospitalization)
  Sender: FDA-Public Use
  Company Number: US-ELI_LILLY_AND_COMPANY-US201009001750

PATIENT
  Sex: Female
  Weight: 82.086 kg

DRUGS (17)
  1. PEMETREXED [Suspect]
     Indication: NON-SMALL CELL LUNG CANCER
     Dosage: 500 MG/M2, EVERY 21 DAYS
     Route: 042
     Dates: start: 20100902
  2. CARBOPLATIN [Suspect]
     Indication: NON-SMALL CELL LUNG CANCER
     Dosage: 6 AUC, EVERY 21 DAYS
     Route: 042
     Dates: start: 20100902
  3. FOLIC ACID [Concomitant]
     Indication: SUPPLEMENTATION THERAPY
     Dates: start: 20100823
  4. VIT B12 [Concomitant]
     Indication: SUPPLEMENTATION THERAPY
     Dates: start: 20100823
  5. LORTAB [Concomitant]
     Indication: PAIN
  6. DURAGESIC-100 [Concomitant]
     Indication: PAIN
     Route: 062
     Dates: start: 20100902
  7. TRIHEXYPHENIDYL HCL [Concomitant]
  8. MIRTAZAPINE [Concomitant]
  9. FEXOFENADINE HCL [Concomitant]
     Dosage: 180 MG, DAILY (1/D)
     Route: 048
  10. TOLTERODINE TARTRATE [Concomitant]
     Dosage: 2 MG, 2/D
     Route: 048
  11. METFORMIN HCL [Concomitant]
     Dosage: 500 MG, 2/D
     Route: 048
  12. RAMIPRIL [Concomitant]
     Dosage: 5 MG, DAILY (1/D)
     Route: 048
  13. CHLORPROMAZINE [Concomitant]
     Dosage: 100 MG, 2 TABS EACH AM, 3 TABS EVERY HS
  14. INSULIN GLARGINE [Concomitant]
     Dosage: 20 U, EACH EVENING
     Route: 058
  15. PROCHLORPERAZINE [Concomitant]
     Dosage: 10 MG, Q6H AS NEEDED
  16. ESZOPICLONE [Concomitant]
     Dosage: 2 MG, EACH EVENING
     Route: 048
  17. WARFARIN [Concomitant]

REACTIONS (1)
  - DYSPNOEA [None]
